FAERS Safety Report 7560919-X (Version None)
Quarter: 2011Q2

REPORT INFORMATION
  Report Type: 
  Country: None (occurrence: None)
  Receive Date: 20110621
  Receipt Date: 20100823
  Transmission Date: 20111010
  Serious: No
  Sender: FDA-Public Use
  Company Number: US-ASTRAZENECA-2010SE39673

PATIENT
  Age: 23290 Day
  Sex: Female

DRUGS (5)
  1. ATACAND [Suspect]
     Dosage: TWO IN AM AND ONE IN PM
     Route: 048
  2. LANOXIN [Concomitant]
  3. CARVETALOL [Concomitant]
  4. COUMADIN [Concomitant]
  5. ATACAND [Suspect]
     Dosage: TWO IN AM AND ONE IN PM
     Route: 048
     Dates: start: 20090101, end: 20100820

REACTIONS (2)
  - NASAL CONGESTION [None]
  - COUGH [None]
